FAERS Safety Report 22703049 (Version 3)
Quarter: 2023Q4

REPORT INFORMATION
  Report Type: Report from Study
  Country: CA (occurrence: CA)
  Receive Date: 20230713
  Receipt Date: 20231124
  Transmission Date: 20240110
  Serious: Yes (Hospitalization, Other)
  Sender: FDA-Public Use
  Company Number: CA-TAKEDA-2023TUS068356

PATIENT
  Age: 64 Year
  Sex: Male

DRUGS (3)
  1. VEDOLIZUMAB [Suspect]
     Active Substance: VEDOLIZUMAB
     Indication: Colitis
     Dosage: 300 MILLIGRAM
     Route: 042
     Dates: start: 20230623
  2. PREDNISONE [Concomitant]
     Active Substance: PREDNISONE
     Dosage: 70 MILLIGRAM, QD
     Dates: start: 20230605
  3. MESALAMINE [Concomitant]
     Active Substance: MESALAMINE
     Dosage: 4.8 GRAM, QD
     Dates: start: 202303

REACTIONS (3)
  - Colitis [Unknown]
  - Hepatitis [Unknown]
  - Off label use [Unknown]

NARRATIVE: CASE EVENT DATE: 20230623
